FAERS Safety Report 17508696 (Version 1)
Quarter: 2020Q1

REPORT INFORMATION
  Report Type: Spontaneous
  Country: US (occurrence: US)
  Receive Date: 20200225
  Receipt Date: 20200225
  Transmission Date: 20200409
  Serious: Yes (Life-Threatening)
  Sender: FDA-Public Use
  Company Number: None

PATIENT
  Age: 73 Year
  Sex: Male

DRUGS (1)
  1. REGADENOSON (REGADENOSON 0.4MG/5ML INJ, SYRINGE 5ML) [Suspect]
     Active Substance: REGADENOSON
     Indication: CARDIAC OPERATION
     Dates: start: 20191022, end: 20191022

REACTIONS (1)
  - Cardiac arrest [None]

NARRATIVE: CASE EVENT DATE: 20191022
